FAERS Safety Report 16379268 (Version 1)
Quarter: 2019Q2

REPORT INFORMATION
  Report Type: Spontaneous
  Country: CA (occurrence: CA)
  Receive Date: 20190531
  Receipt Date: 20190531
  Transmission Date: 20190711
  Serious: Yes (Other)
  Sender: FDA-Public Use
  Company Number: CA-TEVA-2019-CA-1057893

PATIENT
  Age: 55 Year
  Sex: Female
  Weight: 90.8 kg

DRUGS (1)
  1. ACT VALSARTAN [Suspect]
     Active Substance: VALSARTAN
     Indication: HYPERTENSION
     Dosage: 80 MILLIGRAM DAILY;
     Route: 048

REACTIONS (1)
  - Sprue-like enteropathy [Recovering/Resolving]
